FAERS Safety Report 6978348-6 (Version None)
Quarter: 2010Q3

REPORT INFORMATION
  Report Type: 
  Country: None (occurrence: None)
  Receive Date: 20100913
  Receipt Date: 20100831
  Transmission Date: 20110219
  Serious: Yes (Hospitalization, Other)
  Sender: FDA-Public Use
  Company Number: PHHY2010US50800

PATIENT
  Sex: Male
  Weight: 100.9 kg

DRUGS (4)
  1. EXJADE [Suspect]
     Indication: MYELODYSPLASTIC SYNDROME
     Dosage: 1500 MG DAILY
     Route: 048
     Dates: start: 20100630, end: 20100802
  2. REVLIMID [Concomitant]
     Dosage: 15 MG TWICE WEEKLY
  3. MULTI-VITAMIN [Concomitant]
  4. TRANSFUSIONS [Concomitant]

REACTIONS (6)
  - BLOOD COUNT ABNORMAL [None]
  - DECREASED APPETITE [None]
  - FLUID RETENTION [None]
  - RENAL PAIN [None]
  - SPLENOMEGALY [None]
  - WEIGHT DECREASED [None]
